FAERS Safety Report 23520456 (Version 1)
Quarter: 2024Q1

REPORT INFORMATION
  Report Type: Spontaneous
  Country: JP (occurrence: JP)
  Receive Date: 20240214
  Receipt Date: 20240214
  Transmission Date: 20240410
  Serious: Yes (Other)
  Sender: FDA-Public Use
  Company Number: JP-DSJP-DSJ-2023-146655

PATIENT
  Age: 79 Year
  Sex: Male

DRUGS (10)
  1. DENOSUMAB [Suspect]
     Active Substance: DENOSUMAB
     Indication: Osteoporosis
     Dosage: 60 MILLIGRAM
     Route: 065
     Dates: start: 2018, end: 202301
  2. CARBIDOPA\LEVODOPA [Concomitant]
     Active Substance: CARBIDOPA\LEVODOPA
     Indication: Parkinson^s disease
     Dosage: 300 MILLIGRAM, TID
     Route: 065
     Dates: start: 2017
  3. SELEGILINE HYDROCHLORIDE [Concomitant]
     Active Substance: SELEGILINE HYDROCHLORIDE
     Indication: Parkinson^s disease
     Dosage: 5 MILLIGRAM, BID
     Route: 065
     Dates: start: 2017
  4. HERBALS [Concomitant]
     Active Substance: HERBALS
     Dosage: 2.5 GRAM, QD
     Route: 065
  5. HERBAL NOS [Concomitant]
     Active Substance: HERBALS
     Dosage: 7.5 GRAM, TID
     Route: 065
  6. COMTAN [Concomitant]
     Active Substance: ENTACAPONE
     Indication: Parkinson^s disease
     Dosage: 300 MILLIGRAM, TID
     Route: 065
  7. TEPRENONE [Concomitant]
     Active Substance: TEPRENONE
     Dosage: 0.5 GRAM, QD
     Route: 065
  8. MAGNESIUM OXIDE [Concomitant]
     Active Substance: MAGNESIUM OXIDE
     Dosage: 990 MILLIGRAM, TID
     Route: 065
  9. CALCIUM CARBONATE\CHOLECALCIFEROL\MAGNESIUM CARBONATE [Concomitant]
     Active Substance: CALCIUM CARBONATE\CHOLECALCIFEROL\MAGNESIUM CARBONATE
     Indication: Osteoporosis
     Dosage: 2 DOSAGE FORM, QD
     Route: 065
     Dates: start: 2018
  10. NORVASC [Concomitant]
     Active Substance: AMLODIPINE BESYLATE
     Dosage: 5 MILLIGRAM, QD
     Route: 065

REACTIONS (1)
  - Osteomyelitis [Recovering/Resolving]

NARRATIVE: CASE EVENT DATE: 20230202
